FAERS Safety Report 11358677 (Version 1)
Quarter: 2015Q3

REPORT INFORMATION
  Report Type: Spontaneous
  Country: US (occurrence: US)
  Receive Date: 20150803
  Receipt Date: 20150803
  Transmission Date: 20151125
  Serious: No
  Sender: FDA-Public Use
  Company Number: US-ELI_LILLY_AND_COMPANY-US200904000828

PATIENT
  Age: 71 Year
  Sex: Female

DRUGS (4)
  1. DEPAKOTE [Concomitant]
     Active Substance: DIVALPROEX SODIUM
     Indication: AGGRESSION
     Dosage: 250 MG, EVERY 8 HRS
     Dates: start: 20090106, end: 20090113
  2. ZYPREXA [Suspect]
     Active Substance: OLANZAPINE
     Dosage: 375 MG, EACH EVENING
  3. ZYPREXA [Suspect]
     Active Substance: OLANZAPINE
     Indication: INSOMNIA
     Dosage: 250 MG, EACH EVENING
     Dates: start: 20090113
  4. REGLAN [Concomitant]
     Active Substance: METOCLOPRAMIDE HYDROCHLORIDE
     Indication: ABDOMINAL PAIN UPPER

REACTIONS (7)
  - Crying [Not Recovered/Not Resolved]
  - Prescribed overdose [Recovered/Resolved]
  - Aggression [Not Recovered/Not Resolved]
  - Irritability [Not Recovered/Not Resolved]
  - Bruxism [Not Recovered/Not Resolved]
  - Agitation [Not Recovered/Not Resolved]
  - Hypotonia [Not Recovered/Not Resolved]

NARRATIVE: CASE EVENT DATE: 20090113
